FAERS Safety Report 5441864-2 (Version None)
Quarter: 2007Q3

REPORT INFORMATION
  Report Type: 
  Country: None (occurrence: None)
  Receive Date: 20070830
  Receipt Date: 20070830
  Transmission Date: 20080115
  Serious: Yes (Hospitalization)
  Sender: FDA-Public Use
  Company Number: None

PATIENT
  Age: 32 Year
  Sex: Female
  Weight: 80.2867 kg

DRUGS (1)
  1. SULFAMETHOXAZOLE AND TRIMETHOPRIM [Suspect]
     Dosage: 1 TABLET EVERY 12 HRS FOR 10 PO
     Route: 048
     Dates: start: 20070820, end: 20070829

REACTIONS (8)
  - ANXIETY [None]
  - INSOMNIA [None]
  - LIP SWELLING [None]
  - PAIN [None]
  - PAIN IN EXTREMITY [None]
  - PHARYNGEAL OEDEMA [None]
  - PRURITUS [None]
  - VULVOVAGINAL DISCOMFORT [None]
